FAERS Safety Report 7386399-5 (Version None)
Quarter: 2011Q1

REPORT INFORMATION
  Report Type: 
  Country: None (occurrence: None)
  Receive Date: 20110329
  Receipt Date: 20110329
  Transmission Date: 20110831
  Serious: Yes (Life-Threatening, Hospitalization)
  Sender: FDA-Public Use
  Company Number: None

PATIENT
  Age: 41 Year
  Sex: Female
  Weight: 86 kg

DRUGS (1)
  1. MISOPROSTOL [Suspect]

REACTIONS (6)
  - TACHYPNOEA [None]
  - POSTPARTUM HAEMORRHAGE [None]
  - DRUG EXPOSURE DURING PREGNANCY [None]
  - HYPOTENSION [None]
  - TACHYCARDIA [None]
  - DISSEMINATED INTRAVASCULAR COAGULATION [None]
